FAERS Safety Report 16098507 (Version 5)
Quarter: 2019Q3

REPORT INFORMATION
  Report Type: Spontaneous
  Country: DE (occurrence: DE)
  Receive Date: 20190321
  Receipt Date: 20190715
  Transmission Date: 20191004
  Serious: Yes (Other)
  Sender: FDA-Public Use
  Company Number: DE-ROCHE-2278058

PATIENT
  Sex: Male

DRUGS (7)
  1. OCREVUS [Suspect]
     Active Substance: OCRELIZUMAB
     Route: 042
     Dates: start: 20190426
  2. OCREVUS [Suspect]
     Active Substance: OCRELIZUMAB
     Indication: MULTIPLE SCLEROSIS
     Route: 042
     Dates: start: 20181008
  3. ASPIRIN. [Concomitant]
     Active Substance: ASPIRIN
     Route: 065
  4. SIMVASTATIN. [Concomitant]
     Active Substance: SIMVASTATIN
     Route: 065
  5. OCREVUS [Suspect]
     Active Substance: OCRELIZUMAB
     Route: 042
     Dates: start: 20181022
  6. RAMIPRIL. [Concomitant]
     Active Substance: RAMIPRIL
     Route: 065
  7. HYDROCHLOROTHIAZIDE. [Concomitant]
     Active Substance: HYDROCHLOROTHIAZIDE
     Route: 065

REACTIONS (3)
  - Gait disturbance [Not Recovered/Not Resolved]
  - Therapy non-responder [Unknown]
  - Multiple sclerosis [Unknown]
